FAERS Safety Report 6653698-1 (Version None)
Quarter: 2010Q1

REPORT INFORMATION
  Report Type: 
  Country: None (occurrence: None)
  Receive Date: 20100326
  Receipt Date: 20090424
  Transmission Date: 20100710
  Serious: Yes (Life-Threatening, Hospitalization)
  Sender: FDA-Public Use
  Company Number: AU-PFIZER INC-2008063577

PATIENT
  Age: 63 Year
  Sex: Male
  Weight: 46 kg

DRUGS (19)
  1. IRINOTECAN HCL [Suspect]
     Indication: COLORECTAL CANCER
     Dosage: 220 MG, Q 2 WEEKS
     Route: 042
     Dates: start: 20080506, end: 20080714
  2. BLINDED *NO SUBJECT DRUG [Suspect]
     Indication: COLORECTAL CANCER
     Dosage: 37.5 MG, 1X/DAY
     Route: 048
     Dates: start: 20080506, end: 20080722
  3. BLINDED *PLACEBO [Suspect]
     Indication: COLORECTAL CANCER
     Dosage: 37.5 MG, 1X/DAY
     Route: 048
     Dates: start: 20080506, end: 20080722
  4. BLINDED SUNITINIB MALATE [Suspect]
     Indication: COLORECTAL CANCER
     Dosage: 37.5 MG, 1X/DAY
     Route: 048
     Dates: start: 20080506, end: 20080722
  5. *FLUOROURACIL [Suspect]
     Indication: COLORECTAL CANCER
     Dosage: 500 MG, Q 2 WEEKS, LOADING DOSE
     Route: 040
     Dates: start: 20080507, end: 20080716
  6. *FLUOROURACIL [Suspect]
     Dosage: 2950 MG, Q 2 WEEKS
     Route: 042
     Dates: start: 20080507, end: 20080716
  7. *CALCIUM FOLINATE [Suspect]
     Indication: COLORECTAL CANCER
     Dosage: 240 MG, Q 2 WEEKS
     Route: 042
     Dates: start: 20080506, end: 20080714
  8. ENOXAPARIN SODIUM [Suspect]
     Dates: start: 20080412, end: 20080724
  9. PARACETAMOL [Concomitant]
     Dates: start: 20080201
  10. MOVICOL [Concomitant]
     Dates: start: 20080505
  11. DEXAMETHASONE [Concomitant]
     Dates: start: 20080506
  12. GRANISETRON [Concomitant]
     Dates: start: 20080506
  13. TEMAZE [Concomitant]
     Dates: start: 20080508
  14. LOPERAMIDE [Concomitant]
     Dates: start: 20080511
  15. MYLANTA [Concomitant]
     Dates: start: 20080514
  16. ZANTAC [Concomitant]
     Dates: start: 20080514
  17. DOMPERIDONE [Concomitant]
     Dates: start: 20080614
  18. SOMAC [Concomitant]
     Dates: start: 20080614
  19. AMOXICILLIN [Concomitant]
     Dates: start: 20080608, end: 20080712

REACTIONS (2)
  - DIARRHOEA [None]
  - GASTROINTESTINAL HAEMORRHAGE [None]
